FAERS Safety Report 14280833 (Version 1)
Quarter: 2017Q4

REPORT INFORMATION
  Report Type: Spontaneous
  Country: FI (occurrence: FI)
  Receive Date: 20171213
  Receipt Date: 20171213
  Transmission Date: 20180321
  Serious: Yes (Hospitalization)
  Sender: FDA-Public Use
  Company Number: FI-NOVOPROD-576107

PATIENT
  Age: 6 Year
  Sex: Male

DRUGS (3)
  1. NORDITROPIN [Suspect]
     Active Substance: SOMATROPIN
     Indication: SILVER-RUSSELL SYNDROME
     Dosage: 0.35 MG, QD
     Route: 058
     Dates: start: 20160309, end: 20170911
  2. PRONAXEN [Concomitant]
     Active Substance: NAPROXEN
     Indication: PAIN
     Dosage: 5 ML AS NECESSARY
     Route: 048
     Dates: start: 20170901
  3. AMORION [Concomitant]
     Active Substance: AMOXICILLIN
     Indication: OTITIS MEDIA
     Dosage: 6 ML DAILY
     Route: 048
     Dates: start: 20170901

REACTIONS (16)
  - Aggression [Recovering/Resolving]
  - Epilepsy [Recovering/Resolving]
  - Hyperhidrosis [Recovering/Resolving]
  - Electroencephalogram abnormal [Recovering/Resolving]
  - Asthenia [Recovering/Resolving]
  - Headache [Recovering/Resolving]
  - Fatigue [Recovering/Resolving]
  - Nausea [Recovering/Resolving]
  - Petit mal epilepsy [Recovering/Resolving]
  - Hemiparesis [Recovering/Resolving]
  - Snoring [Recovering/Resolving]
  - Feeling hot [Recovering/Resolving]
  - Seizure [Recovering/Resolving]
  - Pallor [Recovering/Resolving]
  - Sleep disorder [Recovering/Resolving]
  - Neurologic neglect syndrome [Recovering/Resolving]

NARRATIVE: CASE EVENT DATE: 20170615
